FAERS Safety Report 11115032 (Version 2)
Quarter: 2015Q2

REPORT INFORMATION
  Report Type: Spontaneous
  Country: US (occurrence: None)
  Receive Date: 20150513
  Receipt Date: 20150522
  Transmission Date: 20150821
  Serious: Yes (Hospitalization)
  Sender: FDA-Public Use
  Company Number: US-H14001-15-00675

PATIENT
  Age: 60 Year
  Sex: Male
  Weight: 96.16 kg

DRUGS (3)
  1. AREDIA (PAMIDRONATE DISODIUM) (PAMIDRONATE DISODIUM) [Concomitant]
  2. DECADRON [Suspect]
     Active Substance: DEXAMETHASONE
     Indication: PLASMA CELL MYELOMA
     Dosage: (20 MG, WEEKLY WITH CHEMOTHERAPY)
     Route: 042
     Dates: start: 20141221, end: 20150120
  3. VELCADE [Suspect]
     Active Substance: BORTEZOMIB
     Indication: PLASMA CELL MYELOMA
     Dosage: (1.6 MG/M2, DAYS 1, 4, 8, 11)
     Route: 042
     Dates: start: 20141221, end: 20150120

REACTIONS (24)
  - Pulmonary oedema [None]
  - Asthenia [None]
  - Blood alkaline phosphatase increased [None]
  - Cardiac failure congestive [None]
  - Vomiting [None]
  - Anaemia of chronic disease [None]
  - Spinal compression fracture [None]
  - Osteolysis [None]
  - Influenza A virus test positive [None]
  - Blood glucose increased [None]
  - Brain natriuretic peptide increased [None]
  - Fall [None]
  - Fluid overload [None]
  - Confusion postoperative [None]
  - Femoroacetabular impingement [None]
  - Blood urea increased [None]
  - Sinus tachycardia [None]
  - Hypoxia [None]
  - Nausea [None]
  - Lumbar spinal stenosis [None]
  - Blood albumin decreased [None]
  - Impaired gastric emptying [None]
  - Delirium [None]
  - Osteoarthritis [None]

NARRATIVE: CASE EVENT DATE: 20150108
